FAERS Safety Report 23955037 (Version 1)
Quarter: 2024Q2

REPORT INFORMATION
  Report Type: Spontaneous
  Country: US (occurrence: US)
  Receive Date: 20240610
  Receipt Date: 20240610
  Transmission Date: 20240716
  Serious: Yes (Other)
  Sender: FDA-Public Use
  Company Number: US-GLENMARK PHARMACEUTICALS-2024GMK091190

PATIENT

DRUGS (4)
  1. LINEZOLID [Interacting]
     Active Substance: LINEZOLID
     Indication: Product used for unknown indication
     Dosage: UNK
     Route: 065
  2. METHADONE [Interacting]
     Active Substance: METHADONE HYDROCHLORIDE
     Indication: Product used for unknown indication
     Dosage: 18 MILLIGRAM, QD (LOW DOSE, LESS THAN 30 MG)
     Route: 065
  3. METHADONE [Interacting]
     Active Substance: METHADONE HYDROCHLORIDE
     Dosage: MEDIUM DOSE (31 TO 80 MG)
     Route: 065
  4. METHADONE [Interacting]
     Active Substance: METHADONE HYDROCHLORIDE
     Dosage: HIGH DOSE (MORE THAN 80 MG)
     Route: 065

REACTIONS (5)
  - Mental status changes [Unknown]
  - Pyrexia [Unknown]
  - Drug interaction [Unknown]
  - Serotonin syndrome [Unknown]
  - Seizure [Unknown]
